FAERS Safety Report 7307724-7 (Version None)
Quarter: 2011Q1

REPORT INFORMATION
  Report Type: 
  Country: None (occurrence: None)
  Receive Date: 20110223
  Receipt Date: 20110216
  Transmission Date: 20110831
  Serious: No
  Sender: FDA-Public Use
  Company Number: US-GILEAD-2010-0031353

PATIENT

DRUGS (3)
  1. PREZISTA [Concomitant]
     Indication: HIV INFECTION
     Route: 064
     Dates: start: 20100608
  2. NORVIR [Concomitant]
     Indication: HIV INFECTION
     Route: 064
     Dates: start: 20100611
  3. TRUVADA [Suspect]
     Indication: HIV INFECTION
     Route: 064

REACTIONS (1)
  - ULTRASOUND ANTENATAL SCREEN ABNORMAL [None]
